FAERS Safety Report 4464578-4 (Version None)
Quarter: 2004Q3

REPORT INFORMATION
  Report Type: 
  Country: None (occurrence: None)
  Receive Date: 20040927
  Receipt Date: 20040913
  Transmission Date: 20050211
  Serious: Yes (Death, Hospitalization)
  Sender: FDA-Public Use
  Company Number: 03P-066-0221914-00

PATIENT
  Age: 64 Year
  Sex: Female
  Weight: 75 kg

DRUGS (7)
  1. HUMIRA [Suspect]
     Indication: RHEUMATOID ARTHRITIS
     Dosage: 1 IN 2 WK; SUBCUTANEOUS
     Route: 058
     Dates: start: 20030314, end: 20030513
  2. METHOTREXATE [Concomitant]
  3. PREDNISONE [Concomitant]
  4. FUROSEMIDE [Concomitant]
  5. GLIBENCLAMIDE [Concomitant]
  6. LISINOPRIL [Concomitant]
  7. RANITIDINE HYDROCHLORIDE [Concomitant]

REACTIONS (19)
  - ACID FAST BACILLI INFECTION [None]
  - ALANINE AMINOTRANSFERASE INCREASED [None]
  - ASPARTATE AMINOTRANSFERASE INCREASED [None]
  - BACTERAEMIA [None]
  - BLOOD CREATINE INCREASED [None]
  - BLOOD CULTURE POSITIVE [None]
  - BLOOD LACTATE DEHYDROGENASE INCREASED [None]
  - C-REACTIVE PROTEIN INCREASED [None]
  - CARDIAC FAILURE [None]
  - COMPUTERISED TOMOGRAM ABNORMAL [None]
  - CULTURE URINE POSITIVE [None]
  - DISSEMINATED TUBERCULOSIS [None]
  - DIZZINESS [None]
  - HISTIOCYTOSIS HAEMATOPHAGIC [None]
  - HYPOGLYCAEMIA [None]
  - HYPOXIA [None]
  - KLEBSIELLA INFECTION [None]
  - MONONUCLEOSIS HETEROPHILE TEST POSITIVE [None]
  - PANCYTOPENIA [None]
